FAERS Safety Report 25570053 (Version 2)
Quarter: 2025Q3

REPORT INFORMATION
  Report Type: Report from Study
  Country: US (occurrence: US)
  Receive Date: 20250717
  Receipt Date: 20250910
  Transmission Date: 20251021
  Serious: Yes (Other)
  Sender: ABBVIE
  Company Number: US-ABBVIE-6372658

PATIENT
  Age: 59 Year
  Sex: Female

DRUGS (1)
  1. SKYRIZI [Suspect]
     Active Substance: RISANKIZUMAB-RZAA
     Indication: Psoriatic arthropathy
     Route: 058
     Dates: start: 20250516

REACTIONS (8)
  - Aortic aneurysm [Recovered/Resolved]
  - Hernia [Unknown]
  - C-reactive protein increased [Not Recovered/Not Resolved]
  - Arthropathy [Not Recovered/Not Resolved]
  - Musculoskeletal disorder [Not Recovered/Not Resolved]
  - Psoriatic arthropathy [Not Recovered/Not Resolved]
  - Platelet count decreased [Not Recovered/Not Resolved]
  - Arthralgia [Not Recovered/Not Resolved]

NARRATIVE: CASE EVENT DATE: 20250101
